FAERS Safety Report 4326276-7 (Version None)
Quarter: 2004Q1

REPORT INFORMATION
  Report Type: 
  Country: None (occurrence: None)
  Receive Date: 20040324
  Receipt Date: 20040308
  Transmission Date: 20041129
  Serious: No
  Sender: FDA-Public Use
  Company Number: A01200401153

PATIENT
  Age: 73 Year
  Sex: Male

DRUGS (2)
  1. ELOXATIN [Suspect]
     Indication: GASTRIC CANCER
     Dosage: INTRAVENOUS NOS
     Route: 042
  2. ELOXATIN [Suspect]
     Indication: METASTASIS
     Dosage: INTRAVENOUS NOS
     Route: 042

REACTIONS (1)
  - TRANSIENT ISCHAEMIC ATTACK [None]
